FAERS Safety Report 5075227-9 (Version None)
Quarter: 2006Q3

REPORT INFORMATION
  Report Type: 
  Country: None (occurrence: None)
  Receive Date: 20060809
  Receipt Date: 20060728
  Transmission Date: 20061208
  Serious: Yes (Hospitalization)
  Sender: FDA-Public Use
  Company Number: PHRM2006FR02248

PATIENT
  Age: 68 Year
  Sex: Male

DRUGS (6)
  1. VOLTARENE LP [Suspect]
     Route: 048
     Dates: end: 20060621
  2. CORTANCYL [Suspect]
     Dosage: 10 MG/DAY
     Route: 048
     Dates: end: 20060623
  3. LASILIX [Suspect]
     Dosage: 20 MG/DAY
     Route: 048
     Dates: end: 20060621
  4. SPECIAFOLDINE [Suspect]
     Dosage: 2 DF/DAY
     Route: 048
  5. OMEPRAZOLE [Suspect]
     Dosage: 20 MG/DAY
     Route: 048
  6. NOVATREX ^LEDERLE^ [Suspect]
     Dosage: 2.5 MG, QW4
     Route: 048
     Dates: start: 20060501, end: 20060622

REACTIONS (3)
  - DIFFUSE ALVEOLAR DAMAGE [None]
  - DYSPNOEA [None]
  - OXYGEN SATURATION DECREASED [None]
